FAERS Safety Report 4964642-7 (Version None)
Quarter: 2006Q2

REPORT INFORMATION
  Report Type: 
  Country: None (occurrence: None)
  Receive Date: 20060406
  Receipt Date: 20050909
  Transmission Date: 20061013
  Serious: Yes (Hospitalization)
  Sender: FDA-Public Use
  Company Number: US-MERCK-0509USA01684

PATIENT
  Age: 66 Year
  Sex: Male
  Weight: 110 kg

DRUGS (11)
  1. VIOXX [Suspect]
     Indication: OSTEOARTHRITIS
     Route: 048
     Dates: start: 19990101, end: 20010629
  2. VIOXX [Suspect]
     Route: 048
     Dates: start: 20010807, end: 20020928
  3. ASPIRIN [Concomitant]
     Indication: BLOOD PRESSURE
     Route: 065
  4. ASPIRIN [Concomitant]
     Indication: PROPHYLAXIS
     Route: 065
  5. FLUOCINONIDE [Concomitant]
     Indication: BLOOD PRESSURE
     Route: 065
  6. FLUOCINONIDE [Concomitant]
     Indication: PSORIASIS
     Route: 065
  7. OXSORALEN [Concomitant]
     Route: 065
  8. DOXAZOSIN MESYLATE [Concomitant]
     Indication: CARDIAC DISORDER
     Route: 065
  9. VIAGRA [Concomitant]
     Indication: ERECTILE DYSFUNCTION
     Route: 065
  10. HYDROCHLOROTHIAZIDE [Concomitant]
     Indication: CARDIAC DISORDER
     Route: 065
  11. CARDURA [Concomitant]
     Indication: HYPERTENSION
     Route: 065
     Dates: start: 19980101, end: 20020901

REACTIONS (21)
  - ACUTE MYOCARDIAL INFARCTION [None]
  - ANGINA PECTORIS [None]
  - ASTHENIA [None]
  - ATRIAL FIBRILLATION [None]
  - ATRIAL FLUTTER [None]
  - CELLULITIS [None]
  - CORONARY ARTERY DISEASE [None]
  - DIABETES MELLITUS [None]
  - DIZZINESS [None]
  - DYSPNOEA [None]
  - HYPERLIPIDAEMIA [None]
  - HYPERTENSION [None]
  - LIPOMA [None]
  - MYOCARDIAL ISCHAEMIA [None]
  - NEPHROLITHIASIS [None]
  - OVERDOSE [None]
  - PALPITATIONS [None]
  - PERIPHERAL VASCULAR DISORDER [None]
  - PROSTATITIS [None]
  - THERAPEUTIC RESPONSE DECREASED [None]
  - VASCULAR GRAFT COMPLICATION [None]
